FAERS Safety Report 4976117-X (Version None)
Quarter: 2006Q2

REPORT INFORMATION
  Report Type: 
  Country: None (occurrence: None)
  Receive Date: 20060411
  Receipt Date: 20060401
  Transmission Date: 20061013
  Serious: Yes (Other)
  Sender: FDA-Public Use
  Company Number: 163-20785-04100108

PATIENT

DRUGS (1)
  1. THALOMID [Suspect]
     Indication: CHRONIC LYMPHOCYTIC LEUKAEMIA RECURRENT
     Dosage: 200 MG DAILY DAYS 1-14 INCREASING BY 200MG Q2WJS UP TO 1000MG, ORAL
     Route: 048
     Dates: start: 20020417

REACTIONS (12)
  - CONJUNCTIVITIS [None]
  - CONSTIPATION [None]
  - DEPRESSED LEVEL OF CONSCIOUSNESS [None]
  - DRY SKIN [None]
  - FATIGUE [None]
  - FEBRILE NEUTROPENIA [None]
  - HYPERGLYCAEMIA [None]
  - HYPERTENSION [None]
  - MYALGIA [None]
  - PHARYNGITIS [None]
  - PNEUMONITIS [None]
  - STOMATITIS [None]
